FAERS Safety Report 19870526 (Version 2)
Quarter: 2022Q2

REPORT INFORMATION
  Report Type: Spontaneous
  Country: DE (occurrence: DE)
  Receive Date: 20210922
  Receipt Date: 20220516
  Transmission Date: 20220720
  Serious: Yes (Other)
  Sender: FDA-Public Use
  Company Number: DE-NOVARTISPH-NVSC2021DE208417

PATIENT
  Age: 1 Day
  Sex: Female
  Weight: 2.4 kg

DRUGS (4)
  1. ESCITALOPRAM [Suspect]
     Active Substance: ESCITALOPRAM OXALATE
     Indication: Foetal exposure during pregnancy
     Dosage: 9MATERNAL DOSE: 10 MG, QD [10 MG/D], 0. - 40.4. GESTATIONAL WEEK)
     Route: 064
     Dates: start: 20200111, end: 20201021
  2. METOPROLOL SUCCINATE [Suspect]
     Active Substance: METOPROLOL SUCCINATE
     Indication: Foetal exposure during pregnancy
     Dosage: (MATERNAL DOSE: 95 MG, QD [95 MG/D],0. - 40.4. GESTATIONAL WEEK)
     Route: 064
     Dates: start: 20200111, end: 20201021
  3. BUPRENORPHINE [Suspect]
     Active Substance: BUPRENORPHINE
     Indication: Foetal exposure during pregnancy
     Dosage: (MATERNAL DOSE: 8 MG, QD [8 MG/D],0. - 40.4. GESTATIONAL WEEK)
     Route: 064
     Dates: start: 20200111, end: 20201021
  4. IBUPROFEN [Concomitant]
     Active Substance: IBUPROFEN
     Indication: Foetal exposure during pregnancy
     Dosage: (MATERNAL DOSE: 400 MG [400 MG/D (BEI BEDARF)] (STRENGTH 400), (0. - 40.4. GESTATIONAL WEEK)
     Route: 064

REACTIONS (4)
  - Drug withdrawal syndrome neonatal [Recovered/Resolved]
  - Sepsis neonatal [Recovered/Resolved]
  - Small for dates baby [Unknown]
  - Foetal exposure during pregnancy [Unknown]

NARRATIVE: CASE EVENT DATE: 20201021
